FAERS Safety Report 4549180-8 (Version None)
Quarter: 2005Q1

REPORT INFORMATION
  Report Type: 
  Country: None (occurrence: None)
  Receive Date: 20050111
  Receipt Date: 20041222
  Transmission Date: 20050727
  Serious: Yes (Death, Other)
  Sender: FDA-Public Use
  Company Number: PHBS2004JP17291

PATIENT
  Age: 7 Year
  Sex: Male

DRUGS (1)
  1. CYCLOSPORINE [Suspect]
     Indication: STEM CELL TRANSPLANT
     Dates: start: 20040401

REACTIONS (15)
  - AKINESIA [None]
  - AMNESIA [None]
  - CONVULSION [None]
  - DEPRESSED LEVEL OF CONSCIOUSNESS [None]
  - DYSKINESIA [None]
  - ENCEPHALITIS VIRAL [None]
  - GRAFT VERSUS HOST DISEASE [None]
  - HYPERKINESIA [None]
  - LUMBAR PUNCTURE ABNORMAL [None]
  - PNEUMOCONIOSIS [None]
  - PRURITUS [None]
  - PULMONARY HAEMORRHAGE [None]
  - RASH [None]
  - RESPIRATORY FAILURE [None]
  - SLEEP DISORDER [None]
